FAERS Safety Report 9201014 (Version 1)
Quarter: 2013Q2

REPORT INFORMATION
  Report Type: Spontaneous
  Country: BE (occurrence: BE)
  Receive Date: 20130401
  Receipt Date: 20130401
  Transmission Date: 20140414
  Serious: Yes (Hospitalization)
  Sender: FDA-Public Use
  Company Number: BE-JNJFOC-20130316950

PATIENT
  Sex: Male

DRUGS (9)
  1. XARELTO [Suspect]
     Indication: THROMBOSIS PROPHYLAXIS
     Route: 048
     Dates: start: 20121123
  2. BETAMETHASONE [Concomitant]
     Indication: SARCOIDOSIS
     Route: 048
  3. OMEPRAZOLE [Concomitant]
     Indication: PROPHYLAXIS
     Route: 048
  4. FLUTICASONE PROPIONATE W/SALMETEROL XINAFOATE [Concomitant]
     Indication: CHRONIC OBSTRUCTIVE PULMONARY DISEASE
     Dosage: 1 PUFF(S)
     Route: 055
  5. SELECTOL [Concomitant]
     Indication: CARDIAC FAILURE
     Dosage: 200 MG-HALF A TABLET PER DAY
     Route: 048
  6. SELECTOL [Concomitant]
     Indication: HYPERTENSION
     Dosage: 200 MG-HALF A TABLET PER DAY
     Route: 048
  7. VENTOLIN [Concomitant]
     Indication: CHRONIC OBSTRUCTIVE PULMONARY DISEASE
     Dosage: WHEN NECESSARY
     Route: 055
  8. BURINEX [Concomitant]
     Indication: CARDIAC FAILURE
     Route: 048
  9. XANTHIUM [Concomitant]
     Indication: CHRONIC OBSTRUCTIVE PULMONARY DISEASE
     Route: 048

REACTIONS (1)
  - Thrombophlebitis superficial [Not Recovered/Not Resolved]
